FAERS Safety Report 23834882 (Version 1)
Quarter: 2024Q2

REPORT INFORMATION
  Report Type: Spontaneous
  Country: US (occurrence: US)
  Receive Date: 20240509
  Receipt Date: 20240509
  Transmission Date: 20240716
  Serious: Yes (Other)
  Sender: FDA-Public Use
  Company Number: US-HALEON-2170621

PATIENT

DRUGS (1)
  1. SENSODYNE PRONAMEL GENTLE WHITENING [Suspect]
     Active Substance: POTASSIUM NITRATE\SODIUM FLUORIDE
     Indication: Product used for unknown indication
     Dosage: EXPDATE:202601
     Route: 065
     Dates: start: 202404

REACTIONS (2)
  - Oropharyngeal blistering [Unknown]
  - Tongue blistering [Unknown]

NARRATIVE: CASE EVENT DATE: 20240401
